FAERS Safety Report 21803386 (Version 2)
Quarter: 2023Q2

REPORT INFORMATION
  Report Type: Report from Study
  Country: BR (occurrence: BR)
  Receive Date: 20230101
  Receipt Date: 20230404
  Transmission Date: 20230721
  Serious: Yes (Other)
  Sender: FDA-Public Use
  Company Number: BR-002147023-NVSC2022BR300890

PATIENT
  Age: 68 Year
  Sex: Female
  Weight: 45 kg

DRUGS (6)
  1. RIBOCICLIB [Suspect]
     Active Substance: RIBOCICLIB
     Indication: Breast cancer
     Dosage: UNK
     Route: 065
  2. RIBOCICLIB [Suspect]
     Active Substance: RIBOCICLIB
     Indication: Hepatic cancer
     Dosage: 3 DOSAGE FORM, QD (TABLET) START 5 MONTHS AGO AND STOP ONE MONTH AGO
     Route: 048
  3. RIBOCICLIB [Suspect]
     Active Substance: RIBOCICLIB
     Indication: Lung neoplasm malignant
     Dosage: 2 DOSAGE FORM, QD, START ONE MONTH AGO
     Route: 048
  4. CARVEDILOL [Concomitant]
     Active Substance: CARVEDILOL
     Indication: Dyspnoea
     Dosage: 1 DOSAGE FORM, BID (TABLET), (STARTED 2 YEAR AGO)
     Route: 048
  5. LOSARTAN [Concomitant]
     Active Substance: LOSARTAN
     Indication: Hypertension
     Dosage: 1 DOSAGE FORM, BID (TABLET), (STARTED 5 OR 6 YEARS AGO)
     Route: 048
  6. CALCIUM [Concomitant]
     Active Substance: CALCIUM
     Indication: Asthenia
     Dosage: 1 DOSAGE FORM, BID (TABLET)
     Route: 048

REACTIONS (6)
  - Immunodeficiency [Recovering/Resolving]
  - Headache [Not Recovered/Not Resolved]
  - Weight abnormal [Recovering/Resolving]
  - Eating disorder [Recovering/Resolving]
  - Malaise [Recovering/Resolving]
  - Vomiting [Recovering/Resolving]

NARRATIVE: CASE EVENT DATE: 20221201
